FAERS Safety Report 13291843 (Version 2)
Quarter: 2017Q1

REPORT INFORMATION
  Report Type: Spontaneous
  Country: FR (occurrence: FR)
  Receive Date: 20170303
  Receipt Date: 20170307
  Transmission Date: 20170428
  Serious: Yes (Other)
  Sender: FDA-Public Use
  Company Number: FR-BEH-2017078539

PATIENT
  Age: 47 Year
  Sex: Female

DRUGS (1)
  1. PRIVIGEN [Suspect]
     Active Substance: HUMAN IMMUNOGLOBULIN G
     Indication: PRODUCT USED FOR UNKNOWN INDICATION
     Dosage: POSOLOGY: 20 G
     Route: 042
     Dates: start: 20170220

REACTIONS (9)
  - Tonic clonic movements [Recovered/Resolved]
  - Tongue biting [Recovered/Resolved]
  - Presyncope [Recovered/Resolved]
  - Epilepsy [Recovered/Resolved]
  - Sinusitis aspergillus [Not Recovered/Not Resolved]
  - Epilepsy [Recovered/Resolved]
  - Breath sounds abnormal [Recovered/Resolved]
  - Acute sinusitis [Not Recovered/Not Resolved]
  - Urinary incontinence [Recovered/Resolved]

NARRATIVE: CASE EVENT DATE: 20170220
